FAERS Safety Report 17562776 (Version 2)
Quarter: 2020Q1

REPORT INFORMATION
  Report Type: Spontaneous
  Country: US (occurrence: US)
  Receive Date: 20200319
  Receipt Date: 20200327
  Transmission Date: 20200409
  Serious: No
  Sender: FDA-Public Use
  Company Number: US-PFIZER INC-2020117727

PATIENT
  Age: 65 Year
  Sex: Female

DRUGS (1)
  1. XELJANZ XR [Suspect]
     Active Substance: TOFACITINIB CITRATE
     Dates: start: 20191201

REACTIONS (4)
  - Abdominal distension [Unknown]
  - Pain in extremity [Unknown]
  - Sleep disorder due to general medical condition, insomnia type [Unknown]
  - Hypoaesthesia [Unknown]
